FAERS Safety Report 10396001 (Version 1)
Quarter: 2014Q3

REPORT INFORMATION
  Report Type: Spontaneous
  Country: US (occurrence: None)
  Receive Date: 20140819
  Receipt Date: 20140819
  Transmission Date: 20150326
  Serious: No
  Sender: FDA-Public Use
  Company Number: None

PATIENT
  Age: 62 Year
  Sex: Female

DRUGS (2)
  1. CLOZAPINE (CLOZARIL) [Suspect]
     Active Substance: CLOZAPINE
     Dates: start: 20140520
  2. DIVALPROEX [Suspect]
     Active Substance: DIVALPROEX SODIUM
     Dates: start: 20140520

REACTIONS (1)
  - Neutropenia [None]

NARRATIVE: CASE EVENT DATE: 20140520
